FAERS Safety Report 8104567-1 (Version None)
Quarter: 2012Q1

REPORT INFORMATION
  Report Type: 
  Country: None (occurrence: None)
  Receive Date: 20120201
  Receipt Date: 20120123
  Transmission Date: 20120608
  Serious: Yes (Hospitalization)
  Sender: FDA-Public Use
  Company Number: JP-MERCK-1201USA03642

PATIENT
  Age: 64 Year
  Sex: Male

DRUGS (5)
  1. FLUOROURACIL [Concomitant]
     Route: 065
  2. OXALIPLATIN [Concomitant]
     Route: 065
  3. ISOVORIN [Concomitant]
     Route: 065
  4. BEVACIZUMAB [Concomitant]
     Route: 065
  5. EMEND [Suspect]
     Indication: PROPHYLAXIS OF NAUSEA AND VOMITING
     Route: 048

REACTIONS (1)
  - ENCEPHALOPATHY [None]
